FAERS Safety Report 18858726 (Version 1)
Quarter: 2021Q1

REPORT INFORMATION
  Report Type: Spontaneous
  Country: US (occurrence: US)
  Receive Date: 20210208
  Receipt Date: 20210208
  Transmission Date: 20210420
  Serious: Yes (Other)
  Sender: FDA-Public Use
  Company Number: US-GLAXOSMITHKLINE-US2021GSK030930

PATIENT
  Sex: Female

DRUGS (4)
  1. ZANTAC [Suspect]
     Active Substance: RANITIDINE HYDROCHLORIDE
     Dosage: 150 MG, WE
     Route: 065
     Dates: start: 198501, end: 201901
  2. RANITIDINE. [Suspect]
     Active Substance: RANITIDINE
     Dosage: 150 MG, WE
     Route: 065
     Dates: start: 198501, end: 201901
  3. RANITIDINE CAPSULE [Suspect]
     Active Substance: RANITIDINE
     Dosage: 150 MG, WE
     Route: 065
     Dates: start: 198501, end: 201901
  4. ZANTAC [Suspect]
     Active Substance: RANITIDINE HYDROCHLORIDE
     Dosage: 150 MG, WE
     Route: 065
     Dates: start: 198501, end: 201901

REACTIONS (1)
  - Lung neoplasm malignant [Unknown]
